FAERS Safety Report 4560592-9 (Version None)
Quarter: 2005Q1

REPORT INFORMATION
  Report Type: 
  Country: None (occurrence: None)
  Receive Date: 20050125
  Receipt Date: 20050113
  Transmission Date: 20050727
  Serious: Yes (Hospitalization, Other)
  Sender: FDA-Public Use
  Company Number: JP-MERCK-0501USA02886

PATIENT
  Age: 74 Year
  Sex: Male

DRUGS (5)
  1. PEPCID [Suspect]
     Route: 042
     Dates: end: 20020501
  2. CEFAZOLIN SODIUM [Concomitant]
     Route: 065
     Dates: end: 20020501
  3. THIOPENTAL SODIUM [Concomitant]
     Indication: INDUCTION OF ANAESTHESIA
     Route: 065
     Dates: start: 20020430, end: 20020430
  4. ISOFLURANE [Suspect]
     Indication: MAINTENANCE OF ANAESTHESIA
     Route: 065
     Dates: start: 20020430, end: 20020430
  5. VECURONIUM BROMIDE [Suspect]
     Indication: MUSCLE RELAXANT THERAPY
     Route: 065
     Dates: start: 20020430, end: 20020430

REACTIONS (3)
  - ANAEMIA [None]
  - RENAL CELL CARCINOMA STAGE UNSPECIFIED [None]
  - RHABDOMYOLYSIS [None]
